FAERS Safety Report 8955038 (Version 2)
Quarter: 2012Q4

REPORT INFORMATION
  Report Type: 
  Country: AT (occurrence: AT)
  Receive Date: 20121210
  Receipt Date: 20121211
  Transmission Date: 20130627
  Serious: Yes (Death, Hospitalization, Other)
  Sender: FDA-Public Use
  Company Number: AT-JNJFOC-20121112403

PATIENT
  Age: 75 Year
  Sex: Male

DRUGS (8)
  1. XARELTO [Suspect]
     Indication: CEREBROVASCULAR ACCIDENT PROPHYLAXIS
     Route: 048
     Dates: start: 20121005, end: 20121019
  2. XARELTO [Suspect]
     Indication: ATRIAL FIBRILLATION
     Route: 048
     Dates: start: 20121005, end: 20121019
  3. ATORVASTATIN [Concomitant]
     Route: 065
  4. TEMESTA [Concomitant]
     Route: 065
  5. NOMEXOR [Concomitant]
     Route: 065
  6. DIGIMERCK [Concomitant]
     Route: 065
  7. THROMBO ASS [Concomitant]
     Route: 065
  8. FURON [Concomitant]
     Route: 065

REACTIONS (3)
  - Cardiac failure acute [Fatal]
  - Cardiac failure [Unknown]
  - Thrombocytopenia [Recovered/Resolved]
